FAERS Safety Report 7741858-8 (Version None)
Quarter: 2011Q3

REPORT INFORMATION
  Report Type: 
  Country: None (occurrence: None)
  Receive Date: 20110912
  Receipt Date: 20110829
  Transmission Date: 20111222
  Serious: Yes (Other)
  Sender: FDA-Public Use
  Company Number: GB-JNJFOC-20110612425

PATIENT
  Sex: Male

DRUGS (11)
  1. AMLODIPINE [Concomitant]
  2. SIMPONI [Suspect]
     Route: 058
     Dates: start: 20100701
  3. TRAMADOL HCL [Concomitant]
  4. LANSOPRAZOLE [Concomitant]
  5. METHOTREXATE [Concomitant]
     Route: 058
  6. FOLIC ACID [Concomitant]
  7. ZAPAIN [Concomitant]
  8. CANDESARTAN CILEXETIL [Concomitant]
  9. SIMPONI [Suspect]
     Indication: PSORIATIC ARTHROPATHY
     Route: 058
     Dates: start: 20110622
  10. PREDNISONE [Concomitant]
  11. CALCEOS [Concomitant]

REACTIONS (1)
  - NAUSEA [None]
